FAERS Safety Report 10496810 (Version 5)
Quarter: 2014Q4

REPORT INFORMATION
  Report Type: Spontaneous
  Country: GB (occurrence: GB)
  Receive Date: 20141006
  Receipt Date: 20141211
  Transmission Date: 20150528
  Serious: Yes (Hospitalization)
  Sender: FDA-Public Use
  Company Number: GB-BIOGENIDEC-2014BI101013

PATIENT
  Sex: Female

DRUGS (2)
  1. TYSABRI [Suspect]
     Active Substance: NATALIZUMAB
     Indication: PRODUCT USED FOR UNKNOWN INDICATION
  2. FINGOLIMOD [Concomitant]
     Active Substance: FINGOLIMOD

REACTIONS (2)
  - Progressive multifocal leukoencephalopathy [Unknown]
  - Cerebrovascular accident [Unknown]
